FAERS Safety Report 8208714-2 (Version None)
Quarter: 2012Q1

REPORT INFORMATION
  Report Type: 
  Country: None (occurrence: None)
  Receive Date: 20120314
  Receipt Date: 20120228
  Transmission Date: 20120608
  Serious: Yes (Hospitalization, Other)
  Sender: FDA-Public Use
  Company Number: JP-PFIZER INC-2011233593

PATIENT
  Age: 85 Year
  Sex: Female
  Weight: 36.3 kg

DRUGS (12)
  1. EVAMYL [Concomitant]
     Indication: INSOMNIA
     Dosage: UNK
     Route: 048
     Dates: start: 19990301, end: 20091226
  2. REMODELLIN [Concomitant]
     Indication: OSTEOPOROSIS
     Dosage: UNK
     Route: 048
     Dates: start: 20090108, end: 20091226
  3. ARICEPT [Concomitant]
     Indication: DEMENTIA ALZHEIMER'S TYPE
     Dosage: UNK
     Route: 048
     Dates: start: 20080118, end: 20091225
  4. EVISTA [Concomitant]
     Indication: OSTEOPOROSIS
     Dosage: UNK
     Route: 048
     Dates: start: 20061209, end: 20091226
  5. CELECOXIB [Suspect]
     Indication: OSTEOARTHRITIS
     Dosage: 100 MG, 2X/DAY
     Route: 048
     Dates: start: 20080515, end: 20091226
  6. LEFTOSE [Concomitant]
     Dosage: UNK
     Route: 048
  7. TOLEDOMIN [Concomitant]
     Indication: DEPRESSION
     Dosage: UNK
     Route: 048
     Dates: start: 20070315, end: 20091226
  8. CEFAZOLIN SODIUM [Concomitant]
     Dosage: UNK
     Route: 048
  9. CLONAZEPAM [Concomitant]
     Indication: EPILEPSY
     Dosage: UNK
     Route: 048
     Dates: start: 20061228, end: 20091226
  10. MUCODYNE [Concomitant]
     Dosage: UNK
     Route: 048
  11. DIOVAN [Concomitant]
     Indication: HYPERTENSION
     Dosage: UNK
     Route: 048
     Dates: start: 20090703, end: 20091226
  12. ADALAT CC [Concomitant]
     Indication: HYPERTENSION
     Dosage: UNK
     Dates: start: 20091023, end: 20091226

REACTIONS (7)
  - GASTRIC ULCER [None]
  - DEPRESSED MOOD [None]
  - EPILEPSY [None]
  - ALTERED STATE OF CONSCIOUSNESS [None]
  - HYPERTENSION [None]
  - GASTROENTERITIS [None]
  - DECREASED APPETITE [None]
